FAERS Safety Report 13428304 (Version 1)
Quarter: 2017Q2

REPORT INFORMATION
  Report Type: Spontaneous
  Country: AR (occurrence: AR)
  Receive Date: 20170411
  Receipt Date: 20170411
  Transmission Date: 20170830
  Serious: Yes (Other)
  Sender: FDA-Public Use
  Company Number: AR-PFIZER INC-2017153327

PATIENT
  Age: 69 Year
  Sex: Female

DRUGS (1)
  1. XELJANZ [Suspect]
     Active Substance: TOFACITINIB CITRATE
     Indication: RHEUMATOID ARTHRITIS
     Dosage: 5 MG, 2X/DAY
     Dates: start: 20140926

REACTIONS (5)
  - Rheumatic disorder [Unknown]
  - Dry eye [Unknown]
  - Arrhythmia [Unknown]
  - Condition aggravated [Unknown]
  - Ear discomfort [Unknown]

NARRATIVE: CASE EVENT DATE: 20161201
